FAERS Safety Report 6192508-6 (Version None)
Quarter: 2009Q2

REPORT INFORMATION
  Report Type: 
  Country: None (occurrence: None)
  Receive Date: 20090518
  Receipt Date: 20090506
  Transmission Date: 20091009
  Serious: Yes (Other)
  Sender: FDA-Public Use
  Company Number: PHEH2009US04534

PATIENT
  Age: 82 Year
  Sex: Male
  Weight: 69.569 kg

DRUGS (6)
  1. EXELON [Suspect]
     Indication: DEMENTIA WITH LEWY BODIES
     Dosage: 9.5 MG, UNK
     Route: 062
     Dates: start: 20090424, end: 20090501
  2. SINEMET [Concomitant]
     Indication: PARKINSON'S DISEASE
     Dosage: 25/100 Q8H
     Route: 048
     Dates: start: 20090328
  3. DEPAKENE [Concomitant]
     Indication: DEMENTIA
     Dosage: 250 MG, QHS
     Route: 048
     Dates: start: 20090417
  4. DEPAKENE [Concomitant]
     Indication: AGGRESSION
  5. RISPERDAL [Concomitant]
     Indication: AGITATION
     Dosage: 1 MG, QHS
     Route: 048
     Dates: start: 20090421
  6. RISPERDAL [Concomitant]
     Indication: AGGRESSION

REACTIONS (6)
  - AGGRESSION [None]
  - ANXIETY [None]
  - CONCOMITANT DISEASE AGGRAVATED [None]
  - INSOMNIA [None]
  - PRURITUS [None]
  - RESTLESSNESS [None]
